FAERS Safety Report 11044410 (Version 1)
Quarter: 2015Q2

REPORT INFORMATION
  Report Type: Spontaneous
  Country: US (occurrence: US)
  Receive Date: 20150417
  Receipt Date: 20150417
  Transmission Date: 20150821
  Serious: No
  Sender: FDA-Public Use
  Company Number: US-PFIZER INC-2015126868

PATIENT
  Age: 63 Year
  Sex: Female

DRUGS (1)
  1. SUTENT [Suspect]
     Active Substance: SUNITINIB MALATE
     Indication: CHEMOTHERAPY
     Dosage: UNK, CYCLIC (ONCE DAILY 1-28 WITH 14 DAYS OFF)
     Route: 048
     Dates: start: 20150323

REACTIONS (2)
  - Erythema [Unknown]
  - Skin irritation [Unknown]
